FAERS Safety Report 7543729-9 (Version None)
Quarter: 2011Q2

REPORT INFORMATION
  Report Type: 
  Country: None (occurrence: None)
  Receive Date: 20110613
  Receipt Date: 20040427
  Transmission Date: 20111010
  Serious: Yes (Death, Hospitalization)
  Sender: FDA-Public Use
  Company Number: PHHO2003VE11831

PATIENT
  Sex: Female

DRUGS (8)
  1. DIGOXIN [Concomitant]
  2. OMEPRAZOLE [Concomitant]
  3. GLUCOFAGE [Concomitant]
  4. LASIX [Concomitant]
  5. ERGOTAMINE [Concomitant]
  6. DIOVAN [Suspect]
     Indication: HYPERTENSION
     Dosage: 80 MG, QD
     Route: 048
     Dates: start: 20000101
  7. CARVEDILOL [Concomitant]
  8. PHENOBARBITAL TAB [Concomitant]

REACTIONS (10)
  - RESPIRATORY ARREST [None]
  - INFARCTION [None]
  - PANCREATIC DISORDER [None]
  - DISEASE PROGRESSION [None]
  - CHEST PAIN [None]
  - ABDOMINAL PAIN UPPER [None]
  - INFLAMMATION [None]
  - ULCER [None]
  - INFECTION PARASITIC [None]
  - GASTRITIS [None]
